FAERS Safety Report 5654788-2 (Version None)
Quarter: 2008Q1

REPORT INFORMATION
  Report Type: 
  Country: None (occurrence: None)
  Receive Date: 20080307
  Receipt Date: 20070713
  Transmission Date: 20080703
  Serious: No
  Sender: FDA-Public Use
  Company Number: A0664022A

PATIENT
  Age: 21 Year
  Sex: Male

DRUGS (1)
  1. REQUIP [Suspect]
     Indication: RESTLESS LEGS SYNDROME
     Route: 048

REACTIONS (3)
  - DISABILITY [None]
  - FEELING ABNORMAL [None]
  - PERFORMANCE STATUS DECREASED [None]
